FAERS Safety Report 22225605 (Version 2)
Quarter: 2023Q2

REPORT INFORMATION
  Report Type: Spontaneous
  Country: US (occurrence: US)
  Receive Date: 20230418
  Receipt Date: 20230531
  Transmission Date: 20230721
  Serious: No
  Sender: FDA-Public Use
  Company Number: US-Blueprint Medicines Corporation-SP-US-2023-000655

PATIENT
  Age: 67 Year
  Sex: Female
  Weight: 55.842 kg

DRUGS (6)
  1. AYVAKIT [Suspect]
     Active Substance: AVAPRITINIB
     Indication: Systemic mastocytosis
     Route: 048
     Dates: start: 20230210
  2. MONTELUKAST [Concomitant]
     Active Substance: MONTELUKAST SODIUM
     Indication: Systemic mastocytosis
     Route: 065
     Dates: start: 201907
  3. LORATADINE [Concomitant]
     Active Substance: LORATADINE
     Indication: Systemic mastocytosis
     Route: 065
     Dates: start: 201907
  4. BENADRYL [Concomitant]
     Active Substance: DIPHENHYDRAMINE HYDROCHLORIDE
     Indication: Systemic mastocytosis
     Route: 065
     Dates: start: 201907
  5. PEPCID [Concomitant]
     Active Substance: FAMOTIDINE
     Indication: Systemic mastocytosis
     Route: 065
     Dates: start: 201907
  6. JAKAFI [Concomitant]
     Active Substance: RUXOLITINIB
     Indication: Myeloproliferative neoplasm
     Route: 065

REACTIONS (1)
  - Pruritus [Not Recovered/Not Resolved]

NARRATIVE: CASE EVENT DATE: 20230322
